FAERS Safety Report 11240742 (Version 5)
Quarter: 2015Q4

REPORT INFORMATION
  Report Type: Report from Study
  Country: US (occurrence: US)
  Receive Date: 20150706
  Receipt Date: 20151118
  Transmission Date: 20160304
  Serious: No
  Sender: FDA-Public Use
  Company Number: PHEH2015US008725

PATIENT
  Sex: Male

DRUGS (4)
  1. EXTAVIA [Suspect]
     Active Substance: INTERFERON BETA-1B
     Dosage: 0.1875 MG (0.75 ML), QOD (5-6 WEEKS)
     Route: 058
  2. EXTAVIA [Suspect]
     Active Substance: INTERFERON BETA-1B
     Indication: MULTIPLE SCLEROSIS
     Dosage: 0.0625 MG (0.25 ML), QOD (1-2 WEEKS)
     Route: 058
     Dates: start: 20150216
  3. EXTAVIA [Suspect]
     Active Substance: INTERFERON BETA-1B
     Dosage: 0.25 MG (1 ML), QOD (7+ WEEKS)
     Route: 058
  4. EXTAVIA [Suspect]
     Active Substance: INTERFERON BETA-1B
     Dosage: 0.125 MG (0.5 ML), QOD (3-4 WEEKS)
     Route: 058

REACTIONS (11)
  - Muscle tightness [Not Recovered/Not Resolved]
  - Limb discomfort [Unknown]
  - Pain in extremity [Unknown]
  - Diplopia [Unknown]
  - Injection site bruising [Unknown]
  - Device issue [Unknown]
  - Central nervous system lesion [Unknown]
  - Dry mouth [Unknown]
  - Abdominal discomfort [Unknown]
  - Injection site haemorrhage [Unknown]
  - Injection site nodule [Unknown]
